FAERS Safety Report 4712874-5 (Version None)
Quarter: 2005Q3

REPORT INFORMATION
  Report Type: 
  Country: None (occurrence: None)
  Receive Date: 20050712
  Receipt Date: 20050712
  Transmission Date: 20060218
  Serious: Yes (Life-Threatening, Hospitalization)
  Sender: FDA-Public Use
  Company Number: None

PATIENT
  Age: 56 Year
  Sex: Female
  Weight: 75.2971 kg

DRUGS (9)
  1. AVELOX [Suspect]
     Indication: PNEUMONIA
     Dosage: 400 MG   ONCE DAILY    ORAL
     Route: 048
     Dates: start: 20050601, end: 20050610
  2. DIFLUCAN [Suspect]
     Indication: FEBRILE NEUTROPENIA
     Dosage: 100 MG   ONCE DAILY   ORAL
     Route: 048
     Dates: start: 20050601, end: 20050610
  3. ASPIRIN [Concomitant]
  4. ALLOPURINOL [Concomitant]
  5. SYNTHROID [Concomitant]
  6. ZOCOR [Concomitant]
  7. MAGOX [Concomitant]
  8. LOPRESSOR [Concomitant]
  9. VASOTEC RPD [Concomitant]

REACTIONS (2)
  - CARDIAC ARREST [None]
  - VENTRICULAR FIBRILLATION [None]
